FAERS Safety Report 9572120 (Version 1)
Quarter: 2013Q4

REPORT INFORMATION
  Report Type: Spontaneous
  Country: FR (occurrence: FR)
  Receive Date: 20131001
  Receipt Date: 20131001
  Transmission Date: 20140711
  Serious: Yes (Hospitalization)
  Sender: FDA-Public Use
  Company Number: FR-PFIZER INC-2013277724

PATIENT
  Age: 76 Year
  Sex: Female

DRUGS (15)
  1. ZYVOXID [Suspect]
     Indication: INFECTION
     Dosage: 600 MG, 2X/DAY
     Route: 048
     Dates: start: 20130716, end: 20130731
  2. VANCOMYCIN [Suspect]
     Dosage: 2 ML, 3X/DAY
     Route: 042
     Dates: start: 20130716, end: 20130802
  3. LEVOTHYROX [Concomitant]
     Indication: HYPOTHYROIDISM
     Dosage: 50 UG, 1X/DAY
     Route: 048
  4. LEXOMIL [Concomitant]
     Indication: ANXIETY DISORDER
     Dosage: 6 MG, 1X/DAY
     Route: 048
     Dates: end: 201307
  5. LOVENOX [Concomitant]
     Indication: THROMBOSIS PROPHYLAXIS
     Dosage: 1 DF, 1X/DAY
     Route: 058
     Dates: start: 201306
  6. SERESTA [Concomitant]
     Indication: ANXIETY DISORDER
     Dosage: 10 MG, 1X/DAY
     Route: 048
     Dates: start: 201307
  7. INEXIUM [Concomitant]
     Indication: ULCER
     Dosage: 40 MG, 1X/DAY
     Route: 048
  8. CREON [Concomitant]
     Indication: CHOLECYSTECTOMY
     Dosage: 25000 IU, 6X/DAY
     Route: 048
  9. PARACETAMOL [Concomitant]
     Indication: PAIN
     Dosage: 1 G, 4X/DAY AS NEEDED
     Route: 048
     Dates: start: 201306
  10. DEROXAT [Concomitant]
     Indication: DEPRESSION
     Dosage: 20 MG, 1X/DAY
     Route: 048
     Dates: end: 201307
  11. ZOPHREN [Concomitant]
     Indication: NAUSEA
     Dosage: 1 DF, 3X/DAY AS NEEDED
     Route: 042
     Dates: start: 201306, end: 201307
  12. ZOPHREN [Concomitant]
     Indication: VOMITING
  13. PRIMPERAN [Concomitant]
     Indication: NAUSEA
     Dosage: 1 DF, 3X/DAY AS NEEDED
     Route: 042
     Dates: start: 201306, end: 201307
  14. PRIMPERAN [Concomitant]
     Indication: VOMITING
  15. SMOFKABIVEN [Concomitant]
     Dosage: 2200 KCAL, DAILY
     Route: 051
     Dates: start: 20130426, end: 20130809

REACTIONS (3)
  - Paraesthesia [Recovered/Resolved]
  - Vertigo [Recovered/Resolved]
  - Diplopia [Recovered/Resolved]
